FAERS Safety Report 8844393 (Version 6)
Quarter: 2012Q4

REPORT INFORMATION
  Report Type: 
  Country: GB (occurrence: GB)
  Receive Date: 20121017
  Receipt Date: 20121221
  Transmission Date: 20130627
  Serious: Yes (Death, Other)
  Sender: FDA-Public Use
  Company Number: PHFR2012GB005406

PATIENT
  Age: 41 None
  Sex: Male

DRUGS (5)
  1. CLOZARIL [Suspect]
     Indication: SCHIZOPHRENIA
     Dosage: 450 UKN, UNK
     Route: 048
     Dates: start: 20010701
  2. PROCYCLIDINE [Concomitant]
     Dosage: 10 mg, UNK
     Route: 048
     Dates: start: 20110429
  3. LEVOMEPROMAZINE [Concomitant]
     Dosage: 100 mg, UNK
     Route: 048
     Dates: start: 20120529
  4. VALPORAL//VALPROIC ACID [Concomitant]
     Dosage: 250 mg, UNK
     Route: 048
     Dates: start: 20120512
  5. FLUOXETINE [Concomitant]
     Dosage: 30 mg, UNK
     Route: 048
     Dates: start: 20110225

REACTIONS (5)
  - Haemorrhage [Fatal]
  - Squamous cell carcinoma of lung [Fatal]
  - Bronchial carcinoma [Unknown]
  - Angiopathy [Unknown]
  - Coagulopathy [Unknown]
